FAERS Safety Report 24262167 (Version 1)
Quarter: 2024Q3

REPORT INFORMATION
  Report Type: Report from Study
  Country: CO (occurrence: CO)
  Receive Date: 20240829
  Receipt Date: 20240829
  Transmission Date: 20241017
  Serious: Yes (Hospitalization)
  Sender: ASTELLAS
  Company Number: CO-ASTELLAS-2024-AER-002208

PATIENT
  Age: 72 Year
  Sex: Male

DRUGS (1)
  1. PROGRAF [Suspect]
     Active Substance: TACROLIMUS
     Indication: Renal transplant
     Dosage: ONGOING
     Route: 048

REACTIONS (2)
  - Gallbladder disorder [Not Recovered/Not Resolved]
  - Pain [Not Recovered/Not Resolved]
